FAERS Safety Report 6170093-2 (Version None)
Quarter: 2009Q2

REPORT INFORMATION
  Report Type: 
  Country: None (occurrence: None)
  Receive Date: 20090428
  Receipt Date: 20090421
  Transmission Date: 20091009
  Serious: Yes (Hospitalization, Other)
  Sender: FDA-Public Use
  Company Number: B0562021A

PATIENT
  Sex: Male

DRUGS (5)
  1. ZOVIRAX [Suspect]
     Indication: HERPES VIRUS INFECTION
     Dosage: 750MG THREE TIMES PER DAY
     Route: 042
     Dates: start: 20090220, end: 20090223
  2. PREDONINE [Concomitant]
     Route: 048
     Dates: start: 20090220, end: 20090225
  3. PREDONINE [Concomitant]
     Route: 048
     Dates: start: 20090224
  4. ASPIRIN [Concomitant]
     Dosage: 100MG PER DAY
     Route: 048
     Dates: start: 20090220
  5. GASTER [Concomitant]
     Indication: DRUG USE FOR UNKNOWN INDICATION
     Dosage: 80MG PER DAY
     Route: 042
     Dates: start: 20090220, end: 20090223

REACTIONS (1)
  - RENAL FAILURE ACUTE [None]
